FAERS Safety Report 7110160-X (Version None)
Quarter: 2010Q4

REPORT INFORMATION
  Report Type: 
  Country: None (occurrence: None)
  Receive Date: 20101118
  Receipt Date: 20101103
  Transmission Date: 20110411
  Serious: Yes (Hospitalization, Other)
  Sender: FDA-Public Use
  Company Number: PHFR2010IE01755

PATIENT
  Sex: Male

DRUGS (7)
  1. CLOZARIL [Suspect]
     Dosage: 500 MG, QD
     Route: 048
     Dates: start: 20100801, end: 20100907
  2. CLOZARIL [Suspect]
     Dosage: UNK
     Route: 048
     Dates: start: 20101007
  3. CLOZARIL [Suspect]
     Dosage: UNK
     Route: 048
     Dates: start: 20101007
  4. DEPIXOL [Concomitant]
     Dosage: 200 MG/WEEKLY
     Route: 030
     Dates: start: 20100924, end: 20101001
  5. EPILIM CHRONO [Concomitant]
     Dosage: 300 MG, BID
     Route: 048
     Dates: start: 20100801, end: 20100907
  6. RISPERIDONE [Concomitant]
     Dosage: 1 MG, BID
     Route: 048
     Dates: start: 20100801, end: 20100907
  7. OLANZAPINE [Concomitant]
     Dosage: 20 MG, UNK
     Dates: start: 20100924, end: 20101005

REACTIONS (3)
  - SCHIZOPHRENIA [None]
  - SUBSTANCE ABUSE [None]
  - TREATMENT NONCOMPLIANCE [None]
